FAERS Safety Report 10230394 (Version 1)
Quarter: 2014Q2

REPORT INFORMATION
  Report Type: Spontaneous
  Country: US (occurrence: US)
  Receive Date: 20140611
  Receipt Date: 20140611
  Transmission Date: 20141212
  Serious: No
  Sender: FDA-Public Use
  Company Number: US-INCYTE CORPORATION-2014IN000515

PATIENT
  Sex: Male
  Weight: 100.68 kg

DRUGS (2)
  1. JAKAFI [Suspect]
     Indication: MYELOFIBROSIS
     Dosage: 15 MG, BID
     Route: 048
     Dates: start: 20130618
  2. JAKAFI [Suspect]
     Dosage: 7.5 MG, BID
     Route: 048

REACTIONS (2)
  - Wrong technique in drug usage process [Unknown]
  - Platelet count decreased [Unknown]
